FAERS Safety Report 7261706-2 (Version None)
Quarter: 2011Q1

REPORT INFORMATION
  Report Type: 
  Country: None (occurrence: None)
  Receive Date: 20110130
  Receipt Date: 20101119
  Transmission Date: 20110831
  Serious: Yes (Hospitalization)
  Sender: FDA-Public Use
  Company Number: US-ABBOTT-10P-163-0680934-00

PATIENT
  Age: 50 Year
  Sex: Female

DRUGS (5)
  1. OXYCONTIN [Concomitant]
     Indication: PAIN
  2. NORVASC [Concomitant]
     Indication: BLOOD PRESSURE
  3. ZOCOR [Concomitant]
     Indication: BLOOD CHOLESTEROL INCREASED
  4. KLONOPIN [Concomitant]
     Indication: ANXIETY
     Dosage: 1 MG, 2-3 TIMES DAILY PRN
  5. HUMIRA [Suspect]
     Indication: RHEUMATOID ARTHRITIS
     Dates: start: 20070101

REACTIONS (5)
  - DIZZINESS [None]
  - DIPLOPIA [None]
  - NAUSEA [None]
  - BLOOD PRESSURE INCREASED [None]
  - TINNITUS [None]
